FAERS Safety Report 5528732-2 (Version None)
Quarter: 2007Q4

REPORT INFORMATION
  Report Type: 
  Country: None (occurrence: None)
  Receive Date: 20071126
  Receipt Date: 20071113
  Transmission Date: 20080405
  Serious: Yes (Hospitalization)
  Sender: FDA-Public Use
  Company Number: 2007-167609-NL

PATIENT
  Age: 19 Year
  Sex: Female
  Weight: 79.8 kg

DRUGS (1)
  1. IMPLANON [Suspect]
     Indication: CONTRACEPTION
     Dosage: SUBDERMAL
     Route: 059
     Dates: start: 20071010

REACTIONS (5)
  - ASTHMA [None]
  - BRONCHITIS [None]
  - LARYNGITIS [None]
  - PNEUMONIA [None]
  - VAGINAL HAEMORRHAGE [None]
